FAERS Safety Report 7097095-6 (Version None)
Quarter: 2010Q4

REPORT INFORMATION
  Report Type: 
  Country: None (occurrence: None)
  Receive Date: 20101111
  Receipt Date: 20101108
  Transmission Date: 20110411
  Serious: Yes (Hospitalization)
  Sender: FDA-Public Use
  Company Number: US-CEPHALON-2010005578

PATIENT
  Sex: Female
  Weight: 75 kg

DRUGS (5)
  1. NUVIGIL [Suspect]
     Indication: BIPOLAR I DISORDER
     Route: 048
     Dates: start: 20101015, end: 20101018
  2. VALPROIC ACID [Concomitant]
     Dates: start: 20080101
  3. LEVOTHYROXINE [Concomitant]
     Dates: start: 20100101
  4. AMLODIPINE [Concomitant]
     Dates: start: 19980101
  5. ZOLPIDEM [Concomitant]
     Dates: start: 20100101, end: 20100927

REACTIONS (6)
  - AGITATION [None]
  - DECREASED APPETITE [None]
  - HALLUCINATION, AUDITORY [None]
  - PSYCHOTIC DISORDER [None]
  - SUICIDAL IDEATION [None]
  - TACHYPHRENIA [None]
